FAERS Safety Report 6936604-1 (Version None)
Quarter: 2010Q3

REPORT INFORMATION
  Report Type: 
  Country: None (occurrence: None)
  Receive Date: 20100818
  Receipt Date: 20100809
  Transmission Date: 20110219
  Serious: Yes (Hospitalization, Other)
  Sender: FDA-Public Use
  Company Number: 233185K09USA

PATIENT
  Age: 44 Year
  Sex: Female

DRUGS (2)
  1. REBIF [Suspect]
     Indication: MULTIPLE SCLEROSIS
     Dosage: 44 MCG, 3 IN 1 WK, SUBCUTANEOUS; 44 MCG, 3 IN 1 WK, SUBCUTANEOUS
     Route: 058
     Dates: start: 20080514, end: 20080915
  2. REBIF [Suspect]
     Indication: MULTIPLE SCLEROSIS
     Dosage: 44 MCG, 3 IN 1 WK, SUBCUTANEOUS; 44 MCG, 3 IN 1 WK, SUBCUTANEOUS
     Route: 058
     Dates: start: 20090120, end: 20090331

REACTIONS (7)
  - ABDOMINAL DISTENSION [None]
  - ABDOMINAL HERNIA [None]
  - BONE CYST [None]
  - BONE NEOPLASM [None]
  - BONE NEOPLASM MALIGNANT [None]
  - INJECTION SITE REACTION [None]
  - INTERVERTEBRAL DISC DISORDER [None]
